FAERS Safety Report 6588173-6 (Version None)
Quarter: 2010Q1

REPORT INFORMATION
  Report Type: 
  Country: None (occurrence: None)
  Receive Date: 20100217
  Receipt Date: 20100217
  Transmission Date: 20100710
  Serious: Yes (Other)
  Sender: FDA-Public Use
  Company Number: None

PATIENT
  Age: 1 Day
  Sex: Male

DRUGS (1)
  1. GENTAK [Suspect]
     Indication: OPHTHALMIA NEONATORUM
     Dates: start: 20091228, end: 20091228

REACTIONS (4)
  - BLISTER [None]
  - ERYTHEMA OF EYELID [None]
  - EYELID OEDEMA [None]
  - SKIN DISCOLOURATION [None]
